FAERS Safety Report 23943408 (Version 1)
Quarter: 2024Q2

REPORT INFORMATION
  Report Type: Other
  Country: CN (occurrence: CN)
  Receive Date: 20240605
  Receipt Date: 20240605
  Transmission Date: 20240716
  Serious: Yes (Hospitalization, Disabling, Other)
  Sender: FDA-Public Use
  Company Number: CN-DENTSPLY-2024SCDP000172

PATIENT
  Age: 53 Year
  Sex: Male
  Weight: 65 kg

DRUGS (1)
  1. LIDOCAINE [Suspect]
     Active Substance: LIDOCAINE
     Indication: Local anaesthesia
     Dosage: 10 MILLILITER OF 0.8% LIDOCAINE INJECTION (PFT)

REACTIONS (6)
  - Binocular visual dysfunction [Recovered/Resolved]
  - Inadvertent injection air bubble [Recovered/Resolved]
  - Blindness transient [Recovered/Resolved]
  - Fatigue [Recovered/Resolved]
  - Cerebral infarction [Recovered/Resolved]
  - Incorrect route of product administration [Recovered/Resolved]
